FAERS Safety Report 5604285-5 (Version None)
Quarter: 2008Q1

REPORT INFORMATION
  Report Type: 
  Country: None (occurrence: None)
  Receive Date: 20080128
  Receipt Date: 20080124
  Transmission Date: 20080703
  Serious: Yes (Other)
  Sender: FDA-Public Use
  Company Number: BR-AVENTIS-200810795GDDC

PATIENT
  Age: 46 Year
  Sex: Female

DRUGS (13)
  1. LANTUS [Suspect]
     Route: 058
  2. LANTUS [Suspect]
     Dosage: DOSE: 17-18
     Route: 058
  3. OSSOPAN [Concomitant]
     Route: 048
     Dates: start: 20080101
  4. GINKO BILOBA [Concomitant]
     Route: 048
     Dates: start: 19880101
  5. GINKO BILOBA [Concomitant]
     Route: 048
     Dates: start: 19880101
  6. HUMALOG [Concomitant]
     Route: 058
     Dates: start: 19930101
  7. VITAMIN E [Concomitant]
     Route: 048
     Dates: start: 19780101
  8. VITAMIN C COMPLEX [Concomitant]
     Route: 048
     Dates: start: 19780101
  9. MAGNESIUM CITRATE [Concomitant]
     Route: 048
     Dates: start: 20060101
  10. LIPOIC ACID [Concomitant]
     Route: 048
     Dates: start: 20060101
  11. TAURINE [Concomitant]
     Route: 048
     Dates: start: 20060101
  12. SODIUM CHLORIDE INJ [Concomitant]
     Route: 048
     Dates: start: 20080101
  13. ALL OTHER THERAPEUTIC PRODUCTS [Concomitant]
     Dates: end: 20070101

REACTIONS (4)
  - HALLUCINATION [None]
  - HYPERGLYCAEMIA [None]
  - HYPOGLYCAEMIA [None]
  - SOMNOLENCE [None]
